FAERS Safety Report 25450975 (Version 2)
Quarter: 2025Q3

REPORT INFORMATION
  Report Type: Spontaneous
  Country: US (occurrence: US)
  Receive Date: 20250618
  Receipt Date: 20250918
  Transmission Date: 20251020
  Serious: No
  Sender: PFIZER
  Company Number: US-PFIZER INC-202500123675

PATIENT
  Age: 46 Year
  Sex: Female

DRUGS (7)
  1. XELJANZ XR [Suspect]
     Active Substance: TOFACITINIB CITRATE
     Indication: Rheumatoid arthritis
     Dosage: 11 MG, 1X/DAY
     Route: 048
  2. XELJANZ XR [Suspect]
     Active Substance: TOFACITINIB CITRATE
     Dosage: 11 MG, 1X/DAY
     Route: 048
  3. ACETAMINOPHEN [Concomitant]
     Active Substance: ACETAMINOPHEN
  4. CALCIUM [Concomitant]
     Active Substance: CALCIUM
  5. IBUPROFEN [Concomitant]
     Active Substance: IBUPROFEN
  6. SULFASALAZINE [Concomitant]
     Active Substance: SULFASALAZINE
  7. HERBALS\TURMERIC [Concomitant]
     Active Substance: HERBALS\TURMERIC

REACTIONS (2)
  - Nasopharyngitis [Recovered/Resolved]
  - Blood cholesterol increased [Unknown]
